FAERS Safety Report 10679862 (Version 3)
Quarter: 2015Q3

REPORT INFORMATION
  Report Type: Spontaneous
  Country: US (occurrence: US)
  Receive Date: 20141229
  Receipt Date: 20150910
  Transmission Date: 20151125
  Serious: No
  Sender: FDA-Public Use
  Company Number: US-PFIZER INC-2014355899

PATIENT
  Age: 64 Year
  Sex: Female
  Weight: 109 kg

DRUGS (13)
  1. LORTAB [Concomitant]
     Active Substance: ACETAMINOPHEN\HYDROCODONE BITARTRATE
  2. ZOFRAN [Concomitant]
     Active Substance: ONDANSETRON HYDROCHLORIDE
     Dosage: UNK
  3. PREDNISONE. [Concomitant]
     Active Substance: PREDNISONE
     Dosage: UNK
  4. SANDOSTATIN [Concomitant]
     Active Substance: OCTREOTIDE ACETATE
     Dosage: UNK
  5. SUTENT [Suspect]
     Active Substance: SUNITINIB MALATE
     Indication: CARCINOID TUMOUR
     Dosage: 25 MG, UNK
     Dates: start: 20141013
  6. CYMBALTA [Concomitant]
     Active Substance: DULOXETINE HYDROCHLORIDE
     Dosage: UNK
  7. BABY ASPIRIN [Concomitant]
     Active Substance: ASPIRIN
     Indication: HYPERTENSION
     Dosage: 81 MG, UNK
  8. LOSARTAN. [Concomitant]
     Active Substance: LOSARTAN
     Dosage: UNK
  9. AMLODIPINE [Concomitant]
     Active Substance: AMLODIPINE BESYLATE
     Dosage: UNK
  10. PROTONIX [Concomitant]
     Active Substance: PANTOPRAZOLE SODIUM
     Indication: GASTRIC DISORDER
     Dosage: UNK
  11. METOPROLOL [Concomitant]
     Active Substance: METOPROLOL
     Dosage: UNK
  12. SUTENT [Suspect]
     Active Substance: SUNITINIB MALATE
     Dosage: 25 MG, 1X/DAY
     Route: 048
     Dates: start: 2015
  13. PREVACID [Concomitant]
     Active Substance: LANSOPRAZOLE
     Dosage: UNK

REACTIONS (17)
  - Pigmentation disorder [Unknown]
  - Dysgeusia [Unknown]
  - Weight decreased [Unknown]
  - Stomatitis [Unknown]
  - Gingival recession [Unknown]
  - Abdominal pain [Unknown]
  - Blood pressure increased [Unknown]
  - Nausea [Unknown]
  - Bronchitis [Recovered/Resolved]
  - Dysphonia [Recovered/Resolved]
  - Diarrhoea [Unknown]
  - Amnesia [Unknown]
  - Weight increased [Unknown]
  - Product use issue [Unknown]
  - Cough [Recovered/Resolved]
  - Insomnia [Unknown]
  - Tooth disorder [Unknown]

NARRATIVE: CASE EVENT DATE: 2015
